FAERS Safety Report 24714187 (Version 1)
Quarter: 2024Q4

REPORT INFORMATION
  Report Type: Spontaneous
  Country: US (occurrence: US)
  Receive Date: 20241209
  Receipt Date: 20241209
  Transmission Date: 20250114
  Serious: No
  Sender: REGENERON
  Company Number: US-REGENERON PHARMACEUTICALS, INC.-2024-159604

PATIENT
  Sex: Male

DRUGS (2)
  1. EYLEA [Suspect]
     Active Substance: AFLIBERCEPT
     Indication: Neovascular age-related macular degeneration
     Dosage: UNK, BOTH EYES (PATIENT ON TREATMENT WITH BOTH EYES), FORMULATION: UNKNOWN
     Route: 031
  2. EYLEA [Suspect]
     Active Substance: AFLIBERCEPT
     Dosage: UNK, RIGHT EYE, FORMULATION: UNKNOWN
     Route: 031

REACTIONS (3)
  - Visual impairment [Unknown]
  - Depressed mood [Unknown]
  - Eye disorder [Recovered/Resolved]

NARRATIVE: CASE EVENT DATE: 20241030
